FAERS Safety Report 4514915-7 (Version None)
Quarter: 2004Q4

REPORT INFORMATION
  Report Type: 
  Country: None (occurrence: None)
  Receive Date: 20041129
  Receipt Date: 20041129
  Transmission Date: 20050328
  Serious: Yes (Life-Threatening, Hospitalization)
  Sender: FDA-Public Use
  Company Number: None

PATIENT
  Age: 56 Year
  Sex: Male
  Weight: 72.5755 kg

DRUGS (1)
  1. ERBITUX   100  MG/50 ML   IMCLONE/BRISTOL [Suspect]
     Indication: CARCINOMA
     Dosage: 758  MG  LOADING DOSE  INTRAVENOUS
     Route: 042
     Dates: start: 20041123, end: 20041123

REACTIONS (2)
  - BLOOD PRESSURE IMMEASURABLE [None]
  - PULSE ABSENT [None]
